FAERS Safety Report 18197897 (Version 1)
Quarter: 2020Q3

REPORT INFORMATION
  Report Type: Spontaneous
  Country: US (occurrence: US)
  Receive Date: 20200826
  Receipt Date: 20200826
  Transmission Date: 20201103
  Serious: No
  Sender: FDA-Public Use
  Company Number: US-CADILA HEALTHCARE LIMITED-US-ZYDUS-052281

PATIENT
  Sex: Male

DRUGS (2)
  1. HUMATROPE [Concomitant]
     Active Substance: SOMATROPIN
     Indication: GROWTH HORMONE DEFICIENCY
     Dosage: UNK
     Route: 058
  2. ANASTROZOLE 1 MILLIGRAM TABLET [Suspect]
     Active Substance: ANASTROZOLE
     Indication: GROWTH HORMONE DEFICIENCY
     Dosage: 1 MILLIGRAM, QD
     Route: 048
     Dates: start: 202003

REACTIONS (2)
  - Rash [Not Recovered/Not Resolved]
  - Product use in unapproved indication [Not Recovered/Not Resolved]

NARRATIVE: CASE EVENT DATE: 202003
